FAERS Safety Report 25701375 (Version 1)
Quarter: 2025Q3

REPORT INFORMATION
  Report Type: Spontaneous
  Country: US (occurrence: US)
  Receive Date: 20250819
  Receipt Date: 20250819
  Transmission Date: 20251020
  Serious: Yes (Other)
  Sender: DR REDDYS
  Company Number: US-DRL-USA-USA/2025/08/012439

PATIENT
  Age: 64 Year
  Sex: Female

DRUGS (5)
  1. LACOSAMIDE [Suspect]
     Active Substance: LACOSAMIDE
     Indication: Malignant catatonia
     Dosage: 200 MG TWICE DAILY
  2. LORAZEPAM [Suspect]
     Active Substance: LORAZEPAM
     Indication: Malignant catatonia
     Dosage: 2 MG BY MOUTH EVERY 8 HOURS
  3. LORAZEPAM [Suspect]
     Active Substance: LORAZEPAM
     Dosage: LORAZEPAM WAS INCREASED TO 6 MG THREE TIMES DAILY
  4. AMANTADINE [Concomitant]
     Active Substance: AMANTADINE
     Indication: Malignant catatonia
     Dosage: 200 MG/DAY OVER THREE WEEKS
  5. CARBIDOPA\LEVODOPA [Concomitant]
     Active Substance: CARBIDOPA\LEVODOPA
     Indication: Malignant catatonia
     Dosage: 10-100 MG TWICE DAILY

REACTIONS (2)
  - Therapeutic product effect incomplete [Unknown]
  - Product use in unapproved indication [Unknown]
